FAERS Safety Report 16538595 (Version 1)
Quarter: 2019Q3

REPORT INFORMATION
  Report Type: Spontaneous
  Country: FR (occurrence: FR)
  Receive Date: 20190708
  Receipt Date: 20190708
  Transmission Date: 20191004
  Serious: Yes (Other)
  Sender: FDA-Public Use
  Company Number: FR-AUROBINDO-AUR-APL-2019-030757

PATIENT

DRUGS (10)
  1. ABIRATERONE ACETATE. [Suspect]
     Active Substance: ABIRATERONE ACETATE
     Dosage: 1000 MG, QCY
     Route: 048
     Dates: start: 20180502, end: 20180502
  2. PREDNISONE. [Suspect]
     Active Substance: PREDNISONE
     Indication: PROSTATE CANCER METASTATIC
     Dosage: 5 MG, QCY
     Route: 048
     Dates: start: 20181122, end: 20181122
  3. DOCETAXEL SOLUTION FOR INFUSION [Suspect]
     Active Substance: DOCETAXEL
     Dosage: 150 MG, QCY
     Route: 042
     Dates: start: 20190307, end: 20190307
  4. PREDNISONE. [Suspect]
     Active Substance: PREDNISONE
     Dosage: 5 MG, QCY
     Route: 048
     Dates: start: 20190502, end: 20190502
  5. DOCETAXEL SOLUTION FOR INFUSION [Suspect]
     Active Substance: DOCETAXEL
     Indication: PROSTATE CANCER METASTATIC
     Dosage: 150 MG, QCY
     Route: 042
     Dates: start: 20181122, end: 20181122
  6. ABIRATERONE ACETATE. [Suspect]
     Active Substance: ABIRATERONE ACETATE
     Indication: PROSTATE CANCER METASTATIC
     Dosage: 1000 MG, QCY
     Route: 048
     Dates: start: 20181122, end: 20181122
  7. TRIPTORELIN ACETATE [Suspect]
     Active Substance: TRIPTORELIN ACETATE
     Indication: PROSTATE CANCER METASTATIC
     Dosage: 1125 MG, QCY
     Route: 042
     Dates: start: 20181025, end: 20181025
  8. TRIPTORELIN ACETATE [Suspect]
     Active Substance: TRIPTORELIN ACETATE
     Dosage: 33.75 MILLIGRAM
     Route: 042
     Dates: start: 201904, end: 201904
  9. BICALUTAMIDE FILM-COATED TABLET [Suspect]
     Active Substance: BICALUTAMIDE
     Dosage: 50 MG, QCY
     Route: 048
     Dates: start: 20181125, end: 20181125
  10. BICALUTAMIDE FILM-COATED TABLET [Suspect]
     Active Substance: BICALUTAMIDE
     Indication: PROSTATE CANCER METASTATIC
     Dosage: 50 MG, QCY
     Route: 048
     Dates: start: 20181025, end: 20181025

REACTIONS (1)
  - Tendon rupture [Recovered/Resolved with Sequelae]

NARRATIVE: CASE EVENT DATE: 20190502
